FAERS Safety Report 9630641 (Version 1)
Quarter: 2013Q4

REPORT INFORMATION
  Report Type: Spontaneous
  Country: US (occurrence: None)
  Receive Date: 20131016
  Receipt Date: 20131016
  Transmission Date: 20140711
  Serious: No
  Sender: FDA-Public Use
  Company Number: None

PATIENT
  Age: 70 Month
  Sex: Male

DRUGS (1)
  1. WARFARIN [Suspect]
     Indication: ANTICOAGULANT THERAPY
     Dosage: TAKE AS DIRECTED
     Dates: start: 20130715, end: 20131013

REACTIONS (5)
  - International normalised ratio increased [None]
  - Joint swelling [None]
  - Joint swelling [None]
  - Haemorrhagic diathesis [None]
  - Product quality issue [None]
